FAERS Safety Report 9475076 (Version 1)
Quarter: 2013Q3

REPORT INFORMATION
  Report Type: Spontaneous
  Country: FR (occurrence: FR)
  Receive Date: 20130824
  Receipt Date: 20130824
  Transmission Date: 20140515
  Serious: Yes (Other)
  Sender: FDA-Public Use
  Company Number: FR-ROCHE-1265016

PATIENT
  Age: 44 Year
  Sex: Male

DRUGS (5)
  1. CELLCEPT [Suspect]
     Indication: LIVER TRANSPLANT
     Route: 048
     Dates: start: 20050622
  2. MENCEVAX AC [Interacting]
     Indication: PRODUCT USED FOR UNKNOWN INDICATION
     Route: 058
     Dates: start: 20091109
  3. MENINGOCOCCAL C CONJUGATE VACCINE [Interacting]
     Indication: PRODUCT USED FOR UNKNOWN INDICATION
     Route: 058
     Dates: start: 20111028
  4. TACROLIMUS HYDRATE [Interacting]
     Indication: LIVER TRANSPLANT
     Route: 048
     Dates: start: 20050622
  5. PREDNISONE [Interacting]
     Indication: LIVER TRANSPLANT
     Route: 048

REACTIONS (2)
  - Drug ineffective [Unknown]
  - Drug interaction [Unknown]
